FAERS Safety Report 6947533-1 (Version None)
Quarter: 2010Q3

REPORT INFORMATION
  Report Type: 
  Country: None (occurrence: None)
  Receive Date: 20100827
  Receipt Date: 20090916
  Transmission Date: 20110219
  Serious: No
  Sender: FDA-Public Use
  Company Number: US-ABBOTT-09P-163-0598079-00

PATIENT
  Sex: Male

DRUGS (2)
  1. NIASPAN [Suspect]
     Indication: ARTERIAL OCCLUSIVE DISEASE
  2. PLAVIX [Concomitant]
     Indication: STENT PLACEMENT

REACTIONS (5)
  - DERMATITIS [None]
  - PRURITUS [None]
  - RASH [None]
  - RASH PAPULAR [None]
  - SKIN REACTION [None]
